FAERS Safety Report 16187774 (Version 7)
Quarter: 2020Q1

REPORT INFORMATION
  Report Type: Report from Study
  Country: None (occurrence: CA)
  Receive Date: 20190412
  Receipt Date: 20200116
  Transmission Date: 20200409
  Serious: Yes (Other)
  Sender: FDA-Public Use
  Company Number: CA-ABBVIE-19S-028-2740301-00

PATIENT
  Age: 50 Year
  Sex: Female
  Weight: 47.9 kg

DRUGS (8)
  1. DEXILANT [Concomitant]
     Active Substance: DEXLANSOPRAZOLE
     Indication: PRODUCT USED FOR UNKNOWN INDICATION
     Dates: start: 20190530, end: 20190711
  2. DUODOPA [Suspect]
     Active Substance: CARBIDOPA\LEVODOPA
     Indication: PARKINSON^S DISEASE
     Dosage: 5.1ML MORNING BOLUS,CONTINUOUS DOSE RATE -2.4ML/HR,EXTRA BOLUS?AMOUNT-0.4ML
     Route: 050
     Dates: start: 20161003, end: 20190611
  3. AZILECT [Concomitant]
     Active Substance: RASAGILINE MESYLATE
     Indication: PARKINSON^S DISEASE
     Route: 048
  4. CLONAZEPAM. [Concomitant]
     Active Substance: CLONAZEPAM
     Indication: SLEEP DISORDER
     Route: 048
  5. EFFEXOR [Concomitant]
     Active Substance: VENLAFAXINE HYDROCHLORIDE
     Indication: ANXIETY
     Route: 048
  6. SUCRALFATE. [Concomitant]
     Active Substance: SUCRALFATE
     Indication: PRODUCT USED FOR UNKNOWN INDICATION
     Dates: start: 20190530, end: 20190711
  7. DUODOPA [Suspect]
     Active Substance: CARBIDOPA\LEVODOPA
     Route: 050
     Dates: start: 20190712
  8. X-A-DAY [Concomitant]
     Indication: CONSTIPATION
     Route: 048

REACTIONS (10)
  - Therapeutic product effect decreased [Unknown]
  - Abdominal discomfort [Unknown]
  - Intussusception [Unknown]
  - Abdominal pain [Recovered/Resolved]
  - Medical device repositioning [Recovering/Resolving]
  - Device dislocation [Unknown]
  - Gastric ulcer [Recovered/Resolved]
  - Duodenal ulcer [Recovered/Resolved]
  - Constipation [Unknown]
  - Device occlusion [Recovered/Resolved]

NARRATIVE: CASE EVENT DATE: 20180410
